FAERS Safety Report 14965376 (Version 4)
Quarter: 2018Q3

REPORT INFORMATION
  Report Type: Spontaneous
  Country: JP (occurrence: JP)
  Receive Date: 20180601
  Receipt Date: 20180827
  Transmission Date: 20181010
  Serious: Yes (Death)
  Sender: FDA-Public Use
  Company Number: JP-CELGENEUS-JPN-20180510834

PATIENT
  Age: 74 Year
  Sex: Female
  Weight: 52 kg

DRUGS (8)
  1. ITRIZOLE [Concomitant]
     Active Substance: ITRACONAZOLE
     Indication: PLASMA CELL MYELOMA
     Dosage: 20 MILLILITER
     Route: 048
     Dates: start: 20180427, end: 20180521
  2. ZOMETA [Concomitant]
     Active Substance: ZOLEDRONIC ACID
     Indication: PLASMA CELL MYELOMA
     Dosage: 4 MILLIGRAM
     Route: 041
     Dates: start: 20180502, end: 20180502
  3. DAIPHEN [Suspect]
     Active Substance: SULFAMETHOXAZOLE\TRIMETHOPRIM
     Indication: PLASMA CELL MYELOMA
     Dosage: 1 TABLET
     Route: 048
     Dates: start: 20180517, end: 20180521
  4. NEXIUM [Concomitant]
     Active Substance: ESOMEPRAZOLE MAGNESIUM
     Indication: PLASMA CELL MYELOMA
     Dosage: 20 MILLIGRAM
     Route: 048
     Dates: start: 20180419, end: 20180521
  5. LENADEX [Suspect]
     Active Substance: DEXAMETHASONE ACETATE
     Indication: PLASMA CELL MYELOMA
     Dosage: 40 MILLIGRAM
     Route: 048
     Dates: start: 20180419, end: 20180521
  6. ALFACALCIDOL [Concomitant]
     Active Substance: ALFACALCIDOL
     Indication: PLASMA CELL MYELOMA
     Dosage: 0.5 MICROGRAM
     Route: 048
     Dates: end: 20180521
  7. REVLIMID [Suspect]
     Active Substance: LENALIDOMIDE
     Indication: PLASMA CELL MYELOMA
     Dosage: 25 MILLIGRAM
     Route: 048
     Dates: start: 20180419, end: 20180521
  8. BAYASPIRIN [Concomitant]
     Active Substance: ASPIRIN
     Indication: PLASMA CELL MYELOMA
     Dosage: 100 MILLIGRAM
     Route: 048
     Dates: start: 20180419, end: 20180521

REACTIONS (2)
  - Rash [Fatal]
  - Sepsis [Fatal]

NARRATIVE: CASE EVENT DATE: 20180518
